FAERS Safety Report 5775682-2 (Version None)
Quarter: 2008Q2

REPORT INFORMATION
  Report Type: 
  Country: None (occurrence: None)
  Receive Date: 20080601
  Receipt Date: 20080318
  Transmission Date: 20081010
  Serious: No
  Sender: FDA-Public Use
  Company Number: US200803004515

PATIENT
  Age: 70 Year
  Sex: Male

DRUGS (2)
  1. BYETTA [Suspect]
     Dosage: 10 UG, SUBCUTNANEOS
     Route: 058
  2. EXENATIDE (EXENATIDE) [Concomitant]

REACTIONS (1)
  - ARTHRITIS [None]
